FAERS Safety Report 26156479 (Version 1)
Quarter: 2025Q4

REPORT INFORMATION
  Report Type: Spontaneous
  Country: US (occurrence: US)
  Receive Date: 20251215
  Receipt Date: 20251215
  Transmission Date: 20260119
  Serious: No
  Sender: ALCON
  Company Number: US-ALCON LABORATORIES-ALC2025US006530

PATIENT
  Age: 52 Year
  Sex: Female

DRUGS (2)
  1. ACOLTREMON [Suspect]
     Active Substance: ACOLTREMON
     Indication: Product used for unknown indication
     Dosage: ONE DROP INTO EACH EYE TWICE  DAILY.
     Route: 047
     Dates: start: 20251016, end: 20251020
  2. LEVOTHYROXINE [Concomitant]
     Active Substance: LEVOTHYROXINE
     Indication: Product used for unknown indication
     Route: 065

REACTIONS (2)
  - Ocular hyperaemia [Unknown]
  - Eye swelling [Unknown]
